FAERS Safety Report 6731284-2 (Version None)
Quarter: 2010Q2

REPORT INFORMATION
  Report Type: 
  Country: None (occurrence: None)
  Receive Date: 20100517
  Receipt Date: 20100517
  Transmission Date: 20101027
  Serious: Yes (Hospitalization)
  Sender: FDA-Public Use
  Company Number: None

PATIENT
  Age: 73 Year
  Sex: Male
  Weight: 89.8122 kg

DRUGS (23)
  1. TOVIAZ [Suspect]
     Indication: MICTURITION URGENCY
     Dosage: 1 TABLET DAILY PO
     Route: 048
     Dates: start: 20100417, end: 20100422
  2. TOVIAZ [Suspect]
     Indication: MICTURITION URGENCY
     Dosage: 1 TABLET DAILY PO
     Route: 048
     Dates: start: 20100506, end: 20100512
  3. LASIX [Concomitant]
  4. MAGNESIUM OXIDE [Concomitant]
  5. LYRICA [Concomitant]
  6. ULTRAM [Concomitant]
  7. LISINOPRIL [Concomitant]
  8. XIFAXAN/RIFAXIMIN [Concomitant]
  9. NADOLOL [Concomitant]
  10. OMEPRAZOLE DR [Concomitant]
  11. SODIUM BENZOATE [Concomitant]
  12. ENULOSE [Concomitant]
  13. DESINIDE [Concomitant]
  14. CARBIDOPA/LEVO/SINEMET [Concomitant]
  15. SPIRONOLACTONE [Concomitant]
  16. LANTUS [Concomitant]
  17. ZINC SULFATE [Concomitant]
  18. MULTI-VITAMIN [Concomitant]
  19. ACETAMINOPHEN/COD [Concomitant]
  20. TYLENOL/CODIENE 3 [Concomitant]
  21. ASPERCREME [Concomitant]
  22. NOVALOG FLEX PEN [Concomitant]
  23. NOVOFINE [Concomitant]

REACTIONS (4)
  - ABASIA [None]
  - BLOOD GLUCOSE INCREASED [None]
  - HEPATIC ENCEPHALOPATHY [None]
  - INCOHERENT [None]
